FAERS Safety Report 11243039 (Version 1)
Quarter: 2015Q3

REPORT INFORMATION
  Report Type: Spontaneous
  Country: IT (occurrence: IT)
  Receive Date: 20150707
  Receipt Date: 20150707
  Transmission Date: 20151125
  Serious: Yes (Hospitalization)
  Sender: FDA-Public Use
  Company Number: IT-TEVA-575513ACC

PATIENT
  Age: 77 Year
  Sex: Female
  Weight: 50 kg

DRUGS (1)
  1. CARBOLITHIUM - 300 MG CAPSULE RIGIDE - TEVA ITALIA S.R.L. [Suspect]
     Active Substance: LITHIUM CARBONATE
     Indication: PRODUCT USED FOR UNKNOWN INDICATION
     Dosage: 2 DOSAGE FORMS DAILY;
     Route: 048
     Dates: start: 20150126, end: 20150126

REACTIONS (4)
  - Confusional state [Recovered/Resolved]
  - Cardiovascular disorder [Recovered/Resolved]
  - Pneumonitis [Recovered/Resolved]
  - Sopor [Recovered/Resolved]

NARRATIVE: CASE EVENT DATE: 20150126
